FAERS Safety Report 4644262-4 (Version None)
Quarter: 2005Q2

REPORT INFORMATION
  Report Type: 
  Country: None (occurrence: None)
  Receive Date: 20050331
  Receipt Date: 20050104
  Transmission Date: 20051028
  Serious: No
  Sender: FDA-Public Use
  Company Number: 05P-163-0285306-00

PATIENT
  Age: 48 Year
  Sex: Female
  Weight: 68.9467 kg

DRUGS (4)
  1. HUMIRA [Suspect]
     Indication: RHEUMATOID ARTHRITIS
     Dosage: 40 MG, 1 IN 2 WK, SUBCUTANEOUS
     Route: 058
     Dates: start: 20041221
  2. HYDROXYCHLOROQUINE PHOSPHATE [Concomitant]
  3. SULINDAC [Concomitant]
  4. PREDNISONE TAB [Concomitant]

REACTIONS (4)
  - COUGH [None]
  - LARYNGITIS [None]
  - NASAL SINUS DRAINAGE [None]
  - PHARYNGOLARYNGEAL PAIN [None]
